FAERS Safety Report 19995839 (Version 2)
Quarter: 2021Q4

REPORT INFORMATION
  Report Type: Report from Study
  Country: US (occurrence: US)
  Receive Date: 20211026
  Receipt Date: 20211221
  Transmission Date: 20220303
  Serious: Yes (Hospitalization, Other)
  Sender: FDA-Public Use
  Company Number: US-BAYER-2021A232191

PATIENT
  Age: 64 Year
  Sex: Female

DRUGS (12)
  1. ADEMPAS [Suspect]
     Active Substance: RIOCIGUAT
     Indication: Pulmonary arterial hypertension
     Dosage: UNK
  2. ADEMPAS [Suspect]
     Active Substance: RIOCIGUAT
     Indication: Pulmonary arterial hypertension
     Dosage: 2.5 MG, TID
     Route: 048
     Dates: start: 20201013
  3. METHADONE [Suspect]
     Active Substance: METHADONE HYDROCHLORIDE
     Indication: Pulmonary sarcoidosis
     Dosage: TAKE 3 TABLET 3 TIMES DAILY
     Dates: start: 20190423
  4. OPSUMIT [Concomitant]
     Active Substance: MACITENTAN
     Dosage: TAKE ONE TIME PER DAY
  5. AUGMENTIN [Concomitant]
     Active Substance: AMOXICILLIN\CLAVULANATE POTASSIUM
     Indication: Tooth infection
     Dosage: 1 TABLET BY MOUTH 2 TIMES DAILY FOR 5 DAYS
  6. FUROSEMIDE [Concomitant]
     Active Substance: FUROSEMIDE
     Dosage: 1 TABLET BY MOUTH EVERYDAY PRN
  7. LORAZEPAM [Concomitant]
     Active Substance: LORAZEPAM
     Dosage: TAKE 2 TABLETS IN MORNING, 2 TABLETS IN AFTERNOON AND 1 TABLET IN EVENING
  8. MORPHINE SULFATE [Concomitant]
     Active Substance: MORPHINE SULFATE
     Dosage: 1 ML, Q8HR
  9. NARCAN [Concomitant]
     Active Substance: NALOXONE HYDROCHLORIDE
  10. PAROXETINE [Concomitant]
     Active Substance: PAROXETINE
     Dosage: TAKE ONE TIME PER DAY
  11. POTASSIUM CHLORIDE [Concomitant]
     Active Substance: POTASSIUM CHLORIDE
     Dosage: 1 TABLET DAILY PRN
  12. XARELTO [Concomitant]
     Active Substance: RIVAROXABAN
     Dosage: TAKE 1 TABLET DAILY

REACTIONS (11)
  - Tooth infection [Recovering/Resolving]
  - Hospitalisation [Recovered/Resolved]
  - Diarrhoea [Recovering/Resolving]
  - Abdominal pain upper [Recovering/Resolving]
  - Vomiting [Recovering/Resolving]
  - Dyspnoea [None]
  - Drug withdrawal syndrome [None]
  - Drug withdrawal syndrome [None]
  - Cough [None]
  - Taste disorder [None]
  - Product dose omission issue [None]

NARRATIVE: CASE EVENT DATE: 20210101
